FAERS Safety Report 17138778 (Version 1)
Quarter: 2019Q4

REPORT INFORMATION
  Report Type: Spontaneous
  Country: US (occurrence: US)
  Receive Date: 20191210
  Receipt Date: 20191210
  Transmission Date: 20200122
  Serious: No
  Sender: FDA-Public Use
  Company Number: None

PATIENT
  Age: 65 Year
  Sex: Female
  Weight: 70.65 kg

DRUGS (7)
  1. TIMOLOL 0.5% OPTHALMIC SOLUTION 1 DROP EACH EYE PER DAY [Concomitant]
  2. PROBIOTIC CAPSULE 1 PER DAY [Concomitant]
  3. BIOTIN GUMMY VITAMINS 2 PER DAY [Concomitant]
  4. MATURE ULTIVITAMIN 1 PER DAY [Concomitant]
  5. ZYRTEC OR ALAVERT PRN [Concomitant]
  6. COMBIGAN [Suspect]
     Active Substance: BRIMONIDINE TARTRATE\TIMOLOL MALEATE
     Indication: OPEN ANGLE GLAUCOMA
     Route: 047
     Dates: start: 20191115, end: 20191125
  7. IMVEXXY ESTRADIOL SUPPOSITORY 2XWEEK [Concomitant]

REACTIONS (1)
  - Drug hypersensitivity [None]

NARRATIVE: CASE EVENT DATE: 20191125
